FAERS Safety Report 4286505-5 (Version None)
Quarter: 2004Q1

REPORT INFORMATION
  Report Type: 
  Country: None (occurrence: None)
  Receive Date: 20040206
  Receipt Date: 20000217
  Transmission Date: 20041129
  Serious: Yes (Hospitalization)
  Sender: FDA-Public Use
  Company Number: 10291037

PATIENT
  Age: 1 Day
  Sex: Female
  Weight: 2 kg

DRUGS (3)
  1. ENDOXAN [Suspect]
     Route: 064
     Dates: start: 19991129, end: 19991129
  2. ADRIBLASTINE [Suspect]
     Route: 064
     Dates: start: 19991129, end: 19991129
  3. CORTICOSTEROID [Concomitant]
     Route: 064
     Dates: start: 19991130, end: 19991208

REACTIONS (13)
  - ABDOMINAL DISTENSION [None]
  - ANAEMIA [None]
  - ANAEMIA NEONATAL [None]
  - ARRHYTHMIA [None]
  - CAESAREAN SECTION [None]
  - FOETAL ARRHYTHMIA [None]
  - FOETAL MOVEMENTS DECREASED [None]
  - JAUNDICE [None]
  - JAUNDICE NEONATAL [None]
  - MATERNAL DRUGS AFFECTING FOETUS [None]
  - NEONATAL DISORDER [None]
  - NEUTROPENIA [None]
  - NEUTROPENIA NEONATAL [None]
